FAERS Safety Report 8198714-3 (Version None)
Quarter: 2012Q1

REPORT INFORMATION
  Report Type: 
  Country: None (occurrence: None)
  Receive Date: 20120309
  Receipt Date: 20120130
  Transmission Date: 20120608
  Serious: No
  Sender: FDA-Public Use
  Company Number: US-AMGEN-USASP2012006003

PATIENT
  Age: 90 Year
  Sex: Female

DRUGS (6)
  1. PROLIA [Suspect]
     Indication: OSTEOPOROSIS POSTMENOPAUSAL
     Dosage: UNK
     Route: 058
     Dates: start: 20120112
  2. VITAMINS                           /00067501/ [Concomitant]
  3. SPIRONOLACTONE [Concomitant]
  4. PROTON PUMP INHIBITORS [Concomitant]
  5. DIOVAN [Concomitant]
  6. ZOCOR [Concomitant]

REACTIONS (6)
  - JOINT SWELLING [None]
  - BACK PAIN [None]
  - MUSCULAR WEAKNESS [None]
  - TOOTHACHE [None]
  - ARTHRALGIA [None]
  - GAIT DISTURBANCE [None]
